FAERS Safety Report 8121181-2 (Version None)
Quarter: 2012Q1

REPORT INFORMATION
  Report Type: 
  Country: None (occurrence: None)
  Receive Date: 20120203
  Receipt Date: 20120123
  Transmission Date: 20120608
  Serious: Yes (Hospitalization, Other)
  Sender: FDA-Public Use
  Company Number: 2012P1003259

PATIENT
  Age: 65 Year
  Sex: Female

DRUGS (2)
  1. ADENOSINE [Suspect]
     Indication: TACHYCARDIA
     Dosage: 6 MG;IV 12 MG;IV 6 MG;IV
     Route: 042
  2. ATENOLOL [Suspect]
     Indication: ATRIAL TACHYCARDIA
     Dosage: 50 MG;QD

REACTIONS (3)
  - BRONCHOSPASM [None]
  - PALPITATIONS [None]
  - SUPRAVENTRICULAR TACHYCARDIA [None]
